FAERS Safety Report 5657648-6 (Version None)
Quarter: 2008Q1

REPORT INFORMATION
  Report Type: 
  Country: None (occurrence: None)
  Receive Date: 20080305
  Receipt Date: 20080219
  Transmission Date: 20080703
  Serious: Yes (Other)
  Sender: FDA-Public Use
  Company Number: 2008S1000042

PATIENT
  Age: 15 Day
  Sex: Male
  Weight: 0.78 kg

DRUGS (9)
  1. NITRIC OXIDE [Suspect]
     Indication: LUNG DISORDER
     Dosage: 5 PPM; CONT; INH
     Route: 055
     Dates: start: 20080108, end: 20080129
  2. NITRIC OXIDE [Suspect]
     Indication: PROPHYLAXIS
     Dosage: 5 PPM; CONT; INH
     Route: 055
     Dates: start: 20080108, end: 20080129
  3. CAFFEINE CITRATE [Concomitant]
  4. FUROSEMIDE [Concomitant]
  5. SODIUM BICARBONATE [Concomitant]
  6. MICONAZOLE [Concomitant]
  7. AMIKACIN [Concomitant]
  8. VANCOMYCIN [Concomitant]
  9. NYSTATIN [Concomitant]

REACTIONS (1)
  - NECROTISING ENTEROCOLITIS NEONATAL [None]
